FAERS Safety Report 20258242 (Version 1)
Quarter: 2021Q4

REPORT INFORMATION
  Report Type: Spontaneous
  Country: IT (occurrence: IT)
  Receive Date: 20211230
  Receipt Date: 20211230
  Transmission Date: 20220303
  Serious: Yes (Disabling)
  Sender: FDA-Public Use
  Company Number: None

PATIENT

DRUGS (4)
  1. LATUDA [Suspect]
     Active Substance: LURASIDONE HYDROCHLORIDE
     Indication: Schizoaffective disorder
     Dosage: 74 MG, QD
     Route: 048
     Dates: start: 20210705, end: 20211022
  2. OXCARBAZEPINE [Concomitant]
     Active Substance: OXCARBAZEPINE
     Dosage: 600 MG
     Route: 048
  3. LORAZEPAM [Concomitant]
     Active Substance: LORAZEPAM
     Dosage: 2.5 MG
     Route: 048
  4. TRAZODONE HYDROCHLORIDE [Concomitant]
     Active Substance: TRAZODONE HYDROCHLORIDE
     Indication: Schizoaffective disorder
     Dosage: 300 MG
     Route: 048
     Dates: end: 20211025

REACTIONS (2)
  - Oromandibular dystonia [Not Recovered/Not Resolved]
  - Off label use [Recovered/Resolved]

NARRATIVE: CASE EVENT DATE: 20210705
